FAERS Safety Report 21981587 (Version 4)
Quarter: 2023Q2

REPORT INFORMATION
  Report Type: Spontaneous
  Country: US (occurrence: US)
  Receive Date: 20230212
  Receipt Date: 20230522
  Transmission Date: 20230722
  Serious: No
  Sender: FDA-Public Use
  Company Number: US-002147023-NVSC2023US032007

PATIENT
  Age: 13 Year
  Sex: Female

DRUGS (1)
  1. MEKINIST [Suspect]
     Active Substance: TRAMETINIB DIMETHYL SULFOXIDE
     Indication: Langerhans^ cell histiocytosis
     Dosage: 1 MG, QD (DAILY)
     Route: 048
     Dates: start: 202301

REACTIONS (6)
  - Headache [Unknown]
  - Fatigue [Unknown]
  - Abdominal pain [Unknown]
  - Tinnitus [Unknown]
  - Off label use [Unknown]
  - Ear disorder [Unknown]

NARRATIVE: CASE EVENT DATE: 20230101
